FAERS Safety Report 12678489 (Version 1)
Quarter: 2016Q3

REPORT INFORMATION
  Report Type: Spontaneous
  Country: US (occurrence: US)
  Receive Date: 20160823
  Receipt Date: 20160823
  Transmission Date: 20161109
  Serious: No
  Sender: FDA-Public Use
  Company Number: US-009507513-1608USA004536

PATIENT
  Age: 30 Year
  Sex: Female
  Weight: 74.83 kg

DRUGS (2)
  1. NEXPLANON [Suspect]
     Active Substance: ETONOGESTREL
     Indication: CONTRACEPTION
     Dosage: EVERY 3 YEARS, RIGHT ARM IMPLANT
  2. NADINE TOAE [Concomitant]

REACTIONS (3)
  - Implant site pain [Unknown]
  - Movement disorder [Unknown]
  - Implant site pain [Unknown]

NARRATIVE: CASE EVENT DATE: 20160729
